FAERS Safety Report 22136268 (Version 1)
Quarter: 2023Q1

REPORT INFORMATION
  Report Type: Spontaneous
  Country: US (occurrence: None)
  Receive Date: 20230323
  Receipt Date: 20230323
  Transmission Date: 20230417
  Serious: Yes (Death)
  Sender: FDA-Public Use
  Company Number: None

PATIENT
  Age: 81 Year
  Sex: Female
  Weight: 67.49 kg

DRUGS (33)
  1. DEFERASIROX [Suspect]
     Active Substance: DEFERASIROX
     Indication: Anaemia
     Dosage: FREQUENCY : DAILY;?
     Route: 048
  2. ACYCLOVIR [Concomitant]
     Active Substance: ACYCLOVIR
  3. ALDACTONE [Concomitant]
     Active Substance: SPIRONOLACTONE
  4. ALPRAZOLAM [Concomitant]
     Active Substance: ALPRAZOLAM
  5. ASPIRIN [Concomitant]
     Active Substance: ASPIRIN
  6. ASPIRIN [Concomitant]
     Active Substance: ASPIRIN
  7. FLUTICASONE PROPIONATE [Concomitant]
     Active Substance: FLUTICASONE PROPIONATE
  8. FUROSEMIDE [Concomitant]
     Active Substance: FUROSEMIDE
  9. GABAPENTIN [Concomitant]
     Active Substance: GABAPENTIN
  10. IBUPROFEN [Concomitant]
     Active Substance: IBUPROFEN
  11. JADENU [Concomitant]
     Active Substance: DEFERASIROX
  12. LACTULOSE [Concomitant]
     Active Substance: LACTULOSE
  13. LASIX [Concomitant]
     Active Substance: FUROSEMIDE
  14. LEVOTHYROXINE SODIUM [Concomitant]
     Active Substance: LEVOTHYROXINE SODIUM
  15. MUPIROCIN [Concomitant]
     Active Substance: MUPIROCIN
  16. NEULASTA ONPRO SUBCUTANEOUS [Concomitant]
  17. NORCO [Concomitant]
     Active Substance: ACETAMINOPHEN\HYDROCODONE BITARTRATE
  18. ORAMAGICRX [Concomitant]
  19. PEPCID AC [Concomitant]
     Active Substance: FAMOTIDINE
  20. POTASSIUM CHLORIDE [Concomitant]
     Active Substance: POTASSIUM CHLORIDE
  21. PREMARIN [Concomitant]
     Active Substance: ESTROGENS, CONJUGATED
  22. PROCHLORPERAZINE [Concomitant]
     Active Substance: PROCHLORPERAZINE
  23. PROCRIT [Concomitant]
     Active Substance: ERYTHROPOIETIN
  24. PROMETHAZINE-DM [Concomitant]
  25. MAGNESIUM CHLORIDE [Concomitant]
     Active Substance: MAGNESIUM CHLORIDE
  26. SPIRONOLACTONE [Concomitant]
     Active Substance: SPIRONOLACTONE
  27. TIKOSYN [Concomitant]
     Active Substance: DOFETILIDE
  28. TIZANIDINE [Concomitant]
     Active Substance: TIZANIDINE
  29. VITAMIN B-12 ER [Concomitant]
  30. VITAMIN D2 [Concomitant]
     Active Substance: ERGOCALCIFEROL
  31. VOLTAREN [Concomitant]
     Active Substance: DICLOFENAC SODIUM
  32. ZOFRAN ODT [Concomitant]
     Active Substance: ONDANSETRON HYDROCHLORIDE
  33. ZOLPIDEM [Concomitant]
     Active Substance: ZOLPIDEM TARTRATE

REACTIONS (4)
  - Myelodysplastic syndrome [None]
  - Cardiac failure [None]
  - Gastrointestinal haemorrhage [None]
  - Asthenia [None]
